FAERS Safety Report 5749438-0 (Version None)
Quarter: 2008Q2

REPORT INFORMATION
  Report Type: 
  Country: None (occurrence: None)
  Receive Date: 20080527
  Receipt Date: 20080513
  Transmission Date: 20081010
  Serious: Yes (Other)
  Sender: FDA-Public Use
  Company Number: A0679435A

PATIENT
  Sex: Male

DRUGS (3)
  1. PAXIL [Suspect]
     Indication: DRUG USE FOR UNKNOWN INDICATION
     Dates: start: 20051101
  2. ZOLOFT [Concomitant]
     Dates: start: 20051101
  3. SEROQUEL [Concomitant]
     Dates: start: 20051101

REACTIONS (2)
  - DRUG EXPOSURE DURING PREGNANCY [None]
  - SITUS INVERSUS [None]
